FAERS Safety Report 10712460 (Version 2)
Quarter: 2015Q2

REPORT INFORMATION
  Report Type: Spontaneous
  Country: US (occurrence: US)
  Receive Date: 20150115
  Receipt Date: 20150512
  Transmission Date: 20150821
  Serious: No
  Sender: FDA-Public Use
  Company Number: US-AMGEN-USASP2014066581

PATIENT
  Age: 79 Year
  Sex: Male

DRUGS (3)
  1. ENBREL [Suspect]
     Active Substance: ETANERCEPT
     Indication: PSORIATIC ARTHROPATHY
     Dosage: 25 MG, ONCE EVERY 6 DAYS
     Route: 065
     Dates: start: 20021210
  2. ENBREL [Suspect]
     Active Substance: ETANERCEPT
     Indication: PSORIASIS
     Dosage: UNK
     Route: 065
  3. ENBREL [Suspect]
     Active Substance: ETANERCEPT
     Indication: RHEUMATOID ARTHRITIS
     Dosage: UNK
     Route: 065

REACTIONS (11)
  - Insomnia [Unknown]
  - Psoriasis [Not Recovered/Not Resolved]
  - Musculoskeletal pain [Recovered/Resolved]
  - Hypokinesia [Unknown]
  - Arthralgia [Not Recovered/Not Resolved]
  - Pain in extremity [Recovered/Resolved]
  - Spinal pain [Recovered/Resolved]
  - Drug effect incomplete [Not Recovered/Not Resolved]
  - Injury associated with device [Recovered/Resolved]
  - Calcinosis [Unknown]
  - Adverse drug reaction [Recovered/Resolved]

NARRATIVE: CASE EVENT DATE: 20021210
